FAERS Safety Report 6661042-9 (Version None)
Quarter: 2010Q1

REPORT INFORMATION
  Report Type: 
  Country: None (occurrence: None)
  Receive Date: 20100331
  Receipt Date: 20100324
  Transmission Date: 20100710
  Serious: No
  Sender: FDA-Public Use
  Company Number: JP-ROCHE-400124

PATIENT
  Sex: Female

DRUGS (3)
  1. TAMIFLU [Suspect]
     Route: 048
     Dates: start: 20050301, end: 20050304
  2. BAKUMONDO-TO [Concomitant]
     Route: 048
     Dates: start: 20050301, end: 20050308
  3. CALONAL [Concomitant]
     Route: 048
     Dates: start: 20050301, end: 20050308

REACTIONS (2)
  - NO ADVERSE EVENT [None]
  - PREGNANCY [None]
